FAERS Safety Report 8392355-0 (Version None)
Quarter: 2012Q2

REPORT INFORMATION
  Report Type: 
  Country: None (occurrence: None)
  Receive Date: 20120529
  Receipt Date: 20120518
  Transmission Date: 20120825
  Serious: Yes (Other)
  Sender: FDA-Public Use
  Company Number: JP-VERTEX PHARMACEUTICALS INC.-AE-2012-007672

PATIENT
  Age: 68 Year
  Sex: Female

DRUGS (9)
  1. PEGASYS [Concomitant]
     Indication: HEPATITIS C
     Route: 051
     Dates: start: 20120320
  2. RIBAVIRIN [Concomitant]
     Route: 048
     Dates: start: 20120501
  3. CLARITIN REDITABS [Concomitant]
     Route: 048
  4. TELAVIC (TELAPREVIR) [Suspect]
     Indication: HEPATITIS C
     Route: 048
     Dates: start: 20120320
  5. RIBAVIRIN [Concomitant]
     Indication: HEPATITIS C
     Route: 048
     Dates: start: 20120320, end: 20120408
  6. RIBAVIRIN [Concomitant]
     Route: 048
     Dates: start: 20120409, end: 20120430
  7. FEROTYM [Concomitant]
     Route: 048
  8. EPADEL [Concomitant]
     Route: 048
  9. LIVALO [Concomitant]
     Route: 048

REACTIONS (3)
  - ANAEMIA [None]
  - PLATELET COUNT DECREASED [None]
  - RASH [None]
